FAERS Safety Report 21613710 (Version 1)
Quarter: 2022Q4

REPORT INFORMATION
  Report Type: Spontaneous
  Country: US (occurrence: None)
  Receive Date: 20221117
  Receipt Date: 20221117
  Transmission Date: 20230113
  Serious: Yes (Hospitalization)
  Sender: FDA-Public Use
  Company Number: None

PATIENT
  Sex: Female

DRUGS (21)
  1. PULMOZYME [Suspect]
     Active Substance: DORNASE ALFA
     Indication: Cystic fibrosis
     Dosage: OTHER QUANTITY : 2.5MG/2.5ML;?FREQUENCY : TWICE A DAY;?
     Route: 055
     Dates: start: 20190709
  2. ALBUTEROL AER HFA [Concomitant]
  3. AZITHROMYCIN TAB [Concomitant]
  4. CAYSTON INH [Concomitant]
  5. CREON CAP [Concomitant]
  6. DEKAS PLUS CAP [Concomitant]
  7. FLONASE ALGY SPR [Concomitant]
  8. FLOVENT HFA AER [Concomitant]
  9. GLUCAGON KIT [Concomitant]
  10. LANTUS SOLOS INJ [Concomitant]
  11. OMEPRAZOLE TAB [Concomitant]
  12. SODIUM CHLOR NEB [Concomitant]
  13. SYMDEKO [Concomitant]
     Active Substance: IVACAFTOR\TEZACAFTOR
  14. TOBRAMYCIN [Concomitant]
     Active Substance: TOBRAMYCIN
  15. TRIKAFTA [Concomitant]
     Active Substance: ELEXACAFTOR\IVACAFTOR\TEZACAFTOR
  16. URSODIOL CAP [Concomitant]
  17. VITAMIN A CAP [Concomitant]
  18. VITAMIN D3 CAP [Concomitant]
  19. VITAMIN E CAP [Concomitant]
  20. VITAMIN K TAB [Concomitant]
  21. ZYRTEC ALLGY TAB [Concomitant]

REACTIONS (1)
  - Cystic fibrosis [None]
